FAERS Safety Report 8335528-5 (Version None)
Quarter: 2012Q2

REPORT INFORMATION
  Report Type: 
  Country: None (occurrence: None)
  Receive Date: 20120503
  Receipt Date: 20120424
  Transmission Date: 20120825
  Serious: Yes (Death)
  Sender: FDA-Public Use
  Company Number: DE-BAXTER-2012BAX004136

PATIENT

DRUGS (6)
  1. NEUPOGEN [Concomitant]
  2. CYCLOPHOSPHAMIDE [Suspect]
     Dosage: ON DAY 1
     Route: 042
  3. RITUXIMAB [Suspect]
     Dosage: ON DAY 1
     Route: 042
  4. PREDNISOLONE ACETATE [Suspect]
     Dosage: ON DAYS 1-5
     Route: 048
  5. VINCRISTINE SULFATE [Suspect]
     Dosage: ON DAY 1
     Route: 042
  6. DOXORUBICIN HCL [Suspect]
     Dosage: ON DAY 1
     Route: 042

REACTIONS (1)
  - PULMONARY HAEMORRHAGE [None]
